FAERS Safety Report 12706062 (Version 2)
Quarter: 2016Q3

REPORT INFORMATION
  Report Type: Spontaneous
  Country: US (occurrence: US)
  Receive Date: 20160901
  Receipt Date: 20160901
  Transmission Date: 20161109
  Serious: No
  Sender: FDA-Public Use
  Company Number: US-JAZZ-2016-US-007808

PATIENT
  Sex: Female

DRUGS (37)
  1. ADVAIR HFA [Concomitant]
     Active Substance: FLUTICASONE PROPIONATE\SALMETEROL XINAFOATE
  2. CALCIUM [Concomitant]
     Active Substance: CALCIUM
  3. QVAR [Concomitant]
     Active Substance: BECLOMETHASONE DIPROPIONATE
  4. ZYRTEC [Concomitant]
     Active Substance: CETIRIZINE HYDROCHLORIDE
  5. FEXOFENADINE HCL [Concomitant]
     Active Substance: FEXOFENADINE HYDROCHLORIDE
  6. XYREM [Suspect]
     Active Substance: SODIUM OXYBATE
     Indication: NARCOLEPSY
     Dosage: 4.5 G, BID
     Route: 048
     Dates: start: 201307
  7. CLONAZEPAM. [Concomitant]
     Active Substance: CLONAZEPAM
  8. FERROUS SULFATE. [Concomitant]
     Active Substance: FERROUS SULFATE
  9. LEVOTHYROXINE. [Concomitant]
     Active Substance: LEVOTHYROXINE
  10. NIFEDICAL XL [Concomitant]
     Active Substance: NIFEDIPINE
  11. TIZANIDINE HCL [Concomitant]
     Active Substance: TIZANIDINE HYDROCHLORIDE
  12. FUROSEMIDE. [Concomitant]
     Active Substance: FUROSEMIDE
  13. ALLERGY [Concomitant]
     Active Substance: UNSPECIFIED INGREDIENT
  14. LOPERAMIDE HCL [Concomitant]
     Active Substance: LOPERAMIDE HYDROCHLORIDE
  15. XYREM [Suspect]
     Active Substance: SODIUM OXYBATE
     Indication: CATAPLEXY
  16. BENADRYL [Concomitant]
     Active Substance: DIPHENHYDRAMINE HYDROCHLORIDE
  17. KRILL OIL [Concomitant]
     Active Substance: DIETARY SUPPLEMENT
  18. LANSOPRAZOLE. [Concomitant]
     Active Substance: LANSOPRAZOLE
  19. SINGULAIR [Concomitant]
     Active Substance: MONTELUKAST SODIUM
  20. FLONASE [Concomitant]
     Active Substance: FLUTICASONE PROPIONATE
  21. CALCIUM CITRATE [Concomitant]
     Active Substance: CALCIUM CITRATE
  22. PROPRANOLOL [Concomitant]
     Active Substance: PROPRANOLOL\PROPRANOLOL HYDROCHLORIDE
  23. POTASSIUM CL [Concomitant]
     Active Substance: POTASSIUM CHLORIDE
  24. LOSARTAN POTASSIUM. [Concomitant]
     Active Substance: LOSARTAN POTASSIUM
  25. ADDERALL [Concomitant]
     Active Substance: AMPHETAMINE ASPARTATE\AMPHETAMINE SULFATE\DEXTROAMPHETAMINE SACCHARATE\DEXTROAMPHETAMINE SULFATE
  26. FOLIC ACID. [Concomitant]
     Active Substance: FOLIC ACID
  27. TRAVATAN [Concomitant]
     Active Substance: TRAVOPROST
  28. PROAIR HFA [Concomitant]
     Active Substance: ALBUTEROL SULFATE
  29. QNASL [Concomitant]
     Active Substance: BECLOMETHASONE DIPROPIONATE
  30. COENZYME Q10 [Concomitant]
     Active Substance: UBIDECARENONE
  31. PRISTIQ EXTENDED-RELEASE [Concomitant]
     Active Substance: DESVENLAFAXINE SUCCINATE
  32. VITAMIN B12 [Concomitant]
     Active Substance: CYANOCOBALAMIN
  33. ABILIFY [Concomitant]
     Active Substance: ARIPIPRAZOLE
  34. IBUPROFEN. [Concomitant]
     Active Substance: IBUPROFEN
  35. LEVOCETIRIZINE [Concomitant]
     Active Substance: LEVOCETIRIZINE
  36. VITAMIN D3 [Concomitant]
     Active Substance: CHOLECALCIFEROL
  37. BIOTIN [Concomitant]
     Active Substance: BIOTIN

REACTIONS (4)
  - Pre-existing condition improved [Unknown]
  - Blood potassium decreased [Unknown]
  - Diarrhoea [Not Recovered/Not Resolved]
  - Therapeutic response unexpected [Unknown]
